FAERS Safety Report 16982561 (Version 1)
Quarter: 2019Q4

REPORT INFORMATION
  Report Type: Spontaneous
  Country: IL (occurrence: IL)
  Receive Date: 20191101
  Receipt Date: 20191101
  Transmission Date: 20200122
  Serious: Yes (Other)
  Sender: FDA-Public Use
  Company Number: IL-ASTELLAS-2019US042876

PATIENT
  Age: 75 Year
  Sex: Female

DRUGS (1)
  1. BETMIGA [Suspect]
     Active Substance: MIRABEGRON
     Indication: HYPERTONIC BLADDER
     Route: 048
     Dates: start: 201910, end: 201910

REACTIONS (3)
  - Arrhythmia [Recovered/Resolved]
  - Pruritus [Recovered/Resolved]
  - Eye swelling [Recovered/Resolved]

NARRATIVE: CASE EVENT DATE: 201910
